FAERS Safety Report 16699668 (Version 1)
Quarter: 2019Q3

REPORT INFORMATION
  Report Type: Report from Study
  Country: US (occurrence: US)
  Receive Date: 20190813
  Receipt Date: 20190813
  Transmission Date: 20191004
  Serious: Yes (Death, Hospitalization)
  Sender: FDA-Public Use
  Company Number: US-TEVA-2019-US-1090530

PATIENT
  Age: 13 Year
  Sex: Male

DRUGS (1)
  1. EPINEPHRINE. [Suspect]
     Active Substance: EPINEPHRINE
     Indication: WHEEZING
     Route: 065

REACTIONS (2)
  - Anaphylactic reaction [Fatal]
  - Drug ineffective [Fatal]

NARRATIVE: CASE EVENT DATE: 2017
